FAERS Safety Report 23354680 (Version 3)
Quarter: 2024Q1

REPORT INFORMATION
  Report Type: Spontaneous
  Country: JP (occurrence: JP)
  Receive Date: 20240101
  Receipt Date: 20240313
  Transmission Date: 20240410
  Serious: Yes (Hospitalization, Other)
  Sender: FDA-Public Use
  Company Number: JP-AMGEN-JPNSP2023231270

PATIENT
  Age: 74 Year
  Sex: Male

DRUGS (2)
  1. EVENITY [Suspect]
     Active Substance: ROMOSOZUMAB-AQQG
     Indication: Osteoporosis
     Dosage: 210 MILLIGRAM, QMO
     Route: 058
     Dates: start: 20231201, end: 20231201
  2. PREGABALIN [Concomitant]
     Active Substance: PREGABALIN
     Indication: Analgesic therapy
     Dosage: 50 MILLIGRAM, BID
     Route: 065
     Dates: start: 20231201, end: 20231201

REACTIONS (2)
  - Depressed level of consciousness [Unknown]
  - Gastric fistula [Unknown]

NARRATIVE: CASE EVENT DATE: 20231201
